FAERS Safety Report 10037458 (Version 2)
Quarter: 2014Q2

REPORT INFORMATION
  Report Type: Spontaneous
  Country: US (occurrence: US)
  Receive Date: 20140326
  Receipt Date: 20140401
  Transmission Date: 20141212
  Serious: Yes (Other)
  Sender: FDA-Public Use
  Company Number: US-PERRIGO-14US002831

PATIENT
  Age: 56 Year
  Sex: Female
  Weight: 61.22 kg

DRUGS (3)
  1. NITETIME FREE LIQGL 977 [Suspect]
     Indication: NASOPHARYNGITIS
     Dosage: 2 LIQUIGELS AT 1930
     Route: 048
     Dates: start: 20140210, end: 20140210
  2. NITETIME FREE LIQGL 977 [Suspect]
     Dosage: 2 LIQUIGELS AT 0330
     Route: 048
     Dates: start: 20140211, end: 20140211
  3. ASACOL [Concomitant]
     Indication: COLITIS
     Dosage: UNK, UNK
     Route: 065

REACTIONS (8)
  - Loss of consciousness [Recovered/Resolved]
  - Head injury [Recovered/Resolved]
  - Tremor [Recovered/Resolved]
  - Malaise [Recovered/Resolved]
  - Fall [Recovered/Resolved]
  - Joint injury [Recovered/Resolved]
  - Contusion [Recovered/Resolved]
  - Feeling abnormal [Recovered/Resolved]
